FAERS Safety Report 6793581-4 (Version None)
Quarter: 2010Q2

REPORT INFORMATION
  Report Type: 
  Country: None (occurrence: None)
  Receive Date: 20100624
  Receipt Date: 20090225
  Transmission Date: 20101027
  Serious: No
  Sender: FDA-Public Use
  Company Number: US-PFIZER INC-2008153069

PATIENT
  Sex: Female

DRUGS (4)
  1. XALEASE [Suspect]
     Indication: GLAUCOMA
     Dosage: UNK
     Dates: start: 20080601
  2. XALATAN [Suspect]
     Indication: GLAUCOMA
     Dosage: UNK
     Dates: start: 20080601
  3. WARFARIN SODIUM [Concomitant]
     Dosage: UNK
  4. VYTORIN [Concomitant]
     Dosage: UNK

REACTIONS (3)
  - EYE DISORDER [None]
  - LATEX ALLERGY [None]
  - OCULAR HYPERAEMIA [None]
